APPROVED DRUG PRODUCT: RIOMET
Active Ingredient: METFORMIN HYDROCHLORIDE
Strength: 500MG/5ML **Federal Register determination that product was not discontinued or withdrawn for safety or effectiveness reasons**
Dosage Form/Route: SOLUTION;ORAL
Application: N021591 | Product #001
Applicant: RANBAXY SIGNATURE LLC
Approved: Sep 11, 2003 | RLD: Yes | RS: No | Type: DISCN